FAERS Safety Report 12513677 (Version 3)
Quarter: 2016Q3

REPORT INFORMATION
  Report Type: Spontaneous
  Country: US (occurrence: US)
  Receive Date: 20160630
  Receipt Date: 20160906
  Transmission Date: 20161109
  Serious: Yes (Death, Other)
  Sender: FDA-Public Use
  Company Number: US-JNJFOC-20160522145

PATIENT
  Age: 67 Year
  Sex: Female

DRUGS (1)
  1. XARELTO [Suspect]
     Active Substance: RIVAROXABAN
     Indication: PRODUCT USED FOR UNKNOWN INDICATION
     Route: 048
     Dates: start: 20130604, end: 201401

REACTIONS (2)
  - Gastrointestinal haemorrhage [Unknown]
  - Sepsis [Fatal]

NARRATIVE: CASE EVENT DATE: 20140107
